FAERS Safety Report 8983823 (Version 2)
Quarter: 2012Q4

REPORT INFORMATION
  Report Type: Report from Study
  Country: RU (occurrence: RU)
  Receive Date: 20121224
  Receipt Date: 20121227
  Transmission Date: 20130627
  Serious: Yes (Death, Other)
  Sender: FDA-Public Use
  Company Number: RU-ROCHE-1171854

PATIENT
  Age: 53 Year
  Sex: Female
  Weight: 76 kg

DRUGS (5)
  1. BEVACIZUMAB [Suspect]
     Indication: COLON CANCER METASTATIC
     Route: 065
     Dates: start: 20120910, end: 20121129
  2. BEVACIZUMAB [Suspect]
     Route: 065
  3. 5-FLUOROURACIL [Concomitant]
     Indication: COLON CANCER METASTATIC
     Dosage: dose:750+1150
     Route: 065
     Dates: start: 20120910, end: 20121108
  4. LEUCOVORIN [Concomitant]
     Indication: COLON CANCER METASTATIC
     Route: 065
     Dates: start: 20120910, end: 20121108
  5. OXALIPLATIN [Concomitant]
     Indication: COLON CANCER METASTATIC
     Route: 065
     Dates: start: 20120910, end: 20121108

REACTIONS (1)
  - Disease progression [Fatal]
